FAERS Safety Report 6185340-0 (Version None)
Quarter: 2009Q2

REPORT INFORMATION
  Report Type: 
  Country: None (occurrence: None)
  Receive Date: 20090511
  Receipt Date: 20090430
  Transmission Date: 20091009
  Serious: Yes (Hospitalization, Other)
  Sender: FDA-Public Use
  Company Number: BR-BAYER-200815372LA

PATIENT
  Age: 35 Year
  Sex: Female

DRUGS (11)
  1. YAZ [Suspect]
     Indication: ORAL CONTRACEPTION
     Dosage: RESTARTED A NEW PACKAGE ON 1ST DAY OF MENSTRUATION (5 OR 6 DAYS OF INTERVAL BETWEEN PACKAGES)
     Route: 048
     Dates: start: 20080101, end: 20080625
  2. DORFLEX [Concomitant]
     Indication: HEADACHE
     Route: 048
  3. DACTIL [Concomitant]
     Indication: ABORTION THREATENED
     Route: 065
     Dates: start: 20080101
  4. MULTI-VITAMINS [Concomitant]
     Indication: VITAMIN SUPPLEMENTATION
     Route: 065
     Dates: start: 20080101
  5. BUSCOPAN [Concomitant]
     Indication: PAIN
     Route: 065
     Dates: start: 20080101
  6. LUFTAL [Concomitant]
     Indication: FLATULENCE
     Route: 065
     Dates: start: 20080101
  7. CHEMICETINE [Concomitant]
     Indication: SURGERY
     Route: 065
     Dates: start: 20080101
  8. ERGOTRATE [Concomitant]
     Indication: SURGERY
     Route: 065
     Dates: start: 20080101
  9. ANESTHESIA [Concomitant]
     Indication: SURGERY
     Route: 065
     Dates: start: 20080101
  10. DICLOFENAC [Concomitant]
     Indication: DRUG USE FOR UNKNOWN INDICATION
     Route: 065
     Dates: start: 20080101
  11. SODIC DIPIRONA [Concomitant]
     Indication: DRUG USE FOR UNKNOWN INDICATION
     Route: 065
     Dates: start: 20080101

REACTIONS (13)
  - ABDOMINAL PAIN [None]
  - ABORTION SPONTANEOUS [None]
  - AMENORRHOEA [None]
  - BACK PAIN [None]
  - BONE PAIN [None]
  - CERVIX DISORDER [None]
  - HEADACHE [None]
  - MALAISE [None]
  - NAUSEA [None]
  - PREGNANCY ON ORAL CONTRACEPTIVE [None]
  - PYREXIA [None]
  - UTERINE INFLAMMATION [None]
  - VAGINAL HAEMORRHAGE [None]
